FAERS Safety Report 5535443-6 (Version None)
Quarter: 2007Q4

REPORT INFORMATION
  Report Type: 
  Country: None (occurrence: None)
  Receive Date: 20071206
  Receipt Date: 20071127
  Transmission Date: 20080405
  Serious: Yes (Other)
  Sender: FDA-Public Use
  Company Number: US-PFIZER INC-2007100019

PATIENT

DRUGS (1)
  1. LYRICA [Suspect]
     Dosage: DAILY DOSE:50MG

REACTIONS (1)
  - CONVULSION [None]
